FAERS Safety Report 7588195-2 (Version None)
Quarter: 2011Q3

REPORT INFORMATION
  Report Type: 
  Country: None (occurrence: None)
  Receive Date: 20110705
  Receipt Date: 20110606
  Transmission Date: 20111222
  Serious: Yes (Hospitalization, Other)
  Sender: FDA-Public Use
  Company Number: US-BAYER-201034360NA

PATIENT
  Age: 17 Year
  Sex: Female
  Weight: 77 kg

DRUGS (17)
  1. LEVAQUIN [Concomitant]
     Dosage: UNK
     Dates: start: 20040301
  2. SULFAMETHOXAZOLE AND TRIMETHOPRIM DOUBLE STRENGTH [Concomitant]
     Dosage: UNK
     Dates: start: 20040129
  3. CIPROFLOXACIN [Concomitant]
     Dosage: UNK
     Dates: start: 20040202
  4. RANITIDINE [Concomitant]
     Dosage: UNK
     Dates: start: 20031114
  5. DIFLUCAN [Concomitant]
     Dosage: UNK
     Dates: start: 20040202
  6. DIPHENHYDRAMINE HCL [Concomitant]
     Dosage: UNK
     Dates: start: 20031230
  7. ZOLOFT [Concomitant]
     Dosage: UNK
     Dates: start: 20040115
  8. PHENAZOPYRIDINE HCL TAB [Concomitant]
     Dosage: UNK
     Dates: start: 20040129
  9. FLAGYL [Concomitant]
  10. OXYCODONE HCL [Concomitant]
  11. PERCOCET [Concomitant]
     Dosage: UNK
     Dates: start: 20050301
  12. AMITRIPTYLINE HCL [Concomitant]
     Dosage: UNK
     Dates: start: 20031112
  13. YASMIN [Suspect]
     Route: 048
     Dates: start: 20030901, end: 20040601
  14. BUTALBITAL [Concomitant]
     Dosage: UNK
     Dates: start: 20031203
  15. NASACORT AQ [Concomitant]
     Dosage: UNK
     Dates: start: 20031203
  16. HYDROCODONE BITARTRATE [Concomitant]
     Dosage: UNK
     Dates: start: 20040116
  17. TRAMADOL HCL [Concomitant]
     Dosage: UNK
     Dates: start: 20040223

REACTIONS (6)
  - GALLBLADDER DISORDER [None]
  - ABDOMINAL PAIN UPPER [None]
  - VOMITING [None]
  - CHOLECYSTITIS CHRONIC [None]
  - QUALITY OF LIFE DECREASED [None]
  - DYSPEPSIA [None]
